FAERS Safety Report 4406221-6 (Version None)
Quarter: 2004Q3

REPORT INFORMATION
  Report Type: 
  Country: None (occurrence: None)
  Receive Date: 20040723
  Receipt Date: 20040520
  Transmission Date: 20050211
  Serious: No
  Sender: FDA-Public Use
  Company Number: US-GLAXOSMITHKLINE-A0511633A

PATIENT
  Sex: Female

DRUGS (4)
  1. AVANDIA [Suspect]
     Dosage: 4MG PER DAY
     Route: 048
     Dates: start: 20040518
  2. GLYBURIDE [Concomitant]
  3. LOVASTATIN [Concomitant]
  4. METHADONE HCL [Concomitant]

REACTIONS (1)
  - STOMACH DISCOMFORT [None]
